FAERS Safety Report 25479201 (Version 1)
Quarter: 2025Q2

REPORT INFORMATION
  Report Type: Spontaneous
  Country: US (occurrence: US)
  Receive Date: 20250625
  Receipt Date: 20250625
  Transmission Date: 20250717
  Serious: Yes (Other)
  Sender: ABBVIE
  Company Number: US-ABBVIE-6339108

PATIENT
  Age: 31 Year
  Sex: Female
  Weight: 78 kg

DRUGS (1)
  1. LILETTA [Suspect]
     Active Substance: LEVONORGESTREL
     Indication: Contraception
     Route: 015
     Dates: start: 20240614, end: 20250618

REACTIONS (3)
  - Uterine haemorrhage [Unknown]
  - Abdominal pain upper [Unknown]
  - Pelvic pain [Unknown]

NARRATIVE: CASE EVENT DATE: 20240701
